FAERS Safety Report 6813399-3 (Version None)
Quarter: 2010Q2

REPORT INFORMATION
  Report Type: 
  Country: None (occurrence: None)
  Receive Date: 20100628
  Receipt Date: 20100611
  Transmission Date: 20101027
  Serious: Yes (Hospitalization)
  Sender: FDA-Public Use
  Company Number: DKLU1062852

PATIENT

DRUGS (2)
  1. SABRIL [Suspect]
     Indication: DRUG USE FOR UNKNOWN INDICATION
     Dosage: FULL DOSE, HALF DOSE
     Dates: start: 20100608
  2. SABRIL [Suspect]
     Indication: DRUG USE FOR UNKNOWN INDICATION
     Dosage: FULL DOSE, HALF DOSE
     Dates: start: 20100610

REACTIONS (2)
  - RESPIRATORY DEPRESSION [None]
  - SEDATION [None]
